FAERS Safety Report 7065280-5 (Version None)
Quarter: 2010Q4

REPORT INFORMATION
  Report Type: 
  Country: None (occurrence: None)
  Receive Date: 20101027
  Receipt Date: 20101020
  Transmission Date: 20110411
  Serious: Yes (Hospitalization)
  Sender: FDA-Public Use
  Company Number: US-MERCK-1010USA00453

PATIENT
  Age: 68 Year
  Sex: Male

DRUGS (3)
  1. JANUVIA [Suspect]
     Indication: TYPE 2 DIABETES MELLITUS
     Route: 048
     Dates: start: 20081217, end: 20100930
  2. METFORMIN [Concomitant]
     Route: 065
  3. GLYBURIDE [Concomitant]
     Route: 065

REACTIONS (2)
  - ABDOMINAL PAIN [None]
  - LIPASE INCREASED [None]
